FAERS Safety Report 7632904-0 (Version None)
Quarter: 2011Q3

REPORT INFORMATION
  Report Type: 
  Country: None (occurrence: None)
  Receive Date: 20110725
  Receipt Date: 20110713
  Transmission Date: 20111222
  Serious: Yes (Other)
  Sender: FDA-Public Use
  Company Number: CA-ROCHE-746577

PATIENT
  Sex: Female
  Weight: 86 kg

DRUGS (10)
  1. ATIVAN [Concomitant]
  2. TRAMADOL HCL [Concomitant]
  3. CYMBALTA [Concomitant]
  4. IMOVANE [Concomitant]
  5. NEXIUM [Concomitant]
  6. BENADRYL [Concomitant]
  7. WELLBUTRIN [Concomitant]
  8. METFORMIN HCL [Concomitant]
  9. BEVACIZUMAB [Suspect]
     Route: 042
     Dates: start: 20100708, end: 20110412
  10. MICARDIS [Concomitant]

REACTIONS (5)
  - BALANCE DISORDER [None]
  - GINGIVAL INFECTION [None]
  - JOINT RANGE OF MOTION DECREASED [None]
  - THORACIC VERTEBRAL FRACTURE [None]
  - HEADACHE [None]
